FAERS Safety Report 6611369-1 (Version None)
Quarter: 2010Q1

REPORT INFORMATION
  Report Type: 
  Country: None (occurrence: None)
  Receive Date: 20100301
  Receipt Date: 20100301
  Transmission Date: 20100710
  Serious: Yes (Hospitalization)
  Sender: FDA-Public Use
  Company Number: None

PATIENT
  Age: 23 Year
  Sex: Female
  Weight: 68.04 kg

DRUGS (1)
  1. ORTHO-CEPT [Suspect]
     Indication: CONTRACEPTION
     Dosage: 1 TAB DAILY ORAL
     Route: 048

REACTIONS (1)
  - PULMONARY EMBOLISM [None]
